FAERS Safety Report 13136184 (Version 2)
Quarter: 2017Q2

REPORT INFORMATION
  Report Type: Report from Study
  Country: JP (occurrence: JP)
  Receive Date: 20170121
  Receipt Date: 20170614
  Transmission Date: 20170830
  Serious: Yes (Other)
  Sender: FDA-Public Use
  Company Number: JP-AMGEN-JPNCT2017010493

PATIENT
  Age: 73 Year
  Sex: Male
  Weight: 62 kg

DRUGS (30)
  1. ROMIPLOSTIM [Suspect]
     Active Substance: ROMIPLOSTIM
     Indication: IMMUNE THROMBOCYTOPENIC PURPURA
     Dosage: 1 MUG/KG, UNK
     Route: 058
     Dates: start: 20140314, end: 20140314
  2. ROMIPLOSTIM [Suspect]
     Active Substance: ROMIPLOSTIM
     Dosage: 3 MUG/KG, UNK
     Route: 058
     Dates: start: 20140502, end: 20140502
  3. PREDNISOLONE. [Concomitant]
     Active Substance: PREDNISOLONE
     Dosage: UNK
     Route: 065
  4. ADALAT [Concomitant]
     Active Substance: NIFEDIPINE
     Indication: HYPERTENSION
     Dosage: UNK
     Route: 048
  5. ROMIPLOSTIM [Suspect]
     Active Substance: ROMIPLOSTIM
     Dosage: 4 MUG/KG, QWK
     Route: 058
     Dates: start: 20140415, end: 20140422
  6. PREDNISOLONE. [Concomitant]
     Active Substance: PREDNISOLONE
     Indication: IMMUNE THROMBOCYTOPENIC PURPURA
     Dosage: 30 MG, UNK
     Route: 048
     Dates: start: 20140129, end: 20140217
  7. PREDNISOLONE. [Concomitant]
     Active Substance: PREDNISOLONE
     Dosage: 5 MG, UNK
     Route: 048
     Dates: start: 20140415
  8. VENOGLOBULIN IH [Concomitant]
     Active Substance: HUMAN IMMUNOGLOBULIN G
     Indication: IMMUNE THROMBOCYTOPENIC PURPURA
     Dosage: 20000 MG, UNK
     Route: 065
     Dates: start: 20140228, end: 20140304
  9. REVOLADE [Concomitant]
     Active Substance: ELTROMBOPAG
     Indication: IMMUNE THROMBOCYTOPENIC PURPURA
     Dosage: 12.5 MG, UNK
     Route: 048
     Dates: start: 20140211, end: 20140224
  10. CARDENALIN [Concomitant]
     Active Substance: DOXAZOSIN MESYLATE
     Indication: HYPERTENSION
     Dosage: UNK
     Route: 048
  11. KERLONG [Concomitant]
     Active Substance: BETAXOLOL HYDROCHLORIDE
     Indication: HYPERTENSION
     Dosage: UNK
     Route: 048
  12. PREDNISOLONE. [Concomitant]
     Active Substance: PREDNISOLONE
     Indication: AUTOIMMUNE NEUTROPENIA
     Dosage: 15 MG, UNK
     Route: 048
     Dates: start: 20140218, end: 20140221
  13. PREDNISOLONE. [Concomitant]
     Active Substance: PREDNISOLONE
     Dosage: 5 MG, UNK
     Route: 048
     Dates: start: 20140226, end: 20140227
  14. PREDNISOLONE. [Concomitant]
     Active Substance: PREDNISOLONE
     Dosage: 7.5 MG, UNK
     Route: 048
     Dates: start: 20140325, end: 20140414
  15. REVOLADE [Concomitant]
     Active Substance: ELTROMBOPAG
     Dosage: 25 MG, UNK
     Route: 048
     Dates: start: 20140225, end: 20140310
  16. REVOLADE [Concomitant]
     Active Substance: ELTROMBOPAG
     Dosage: 37.5 MG, UNK
     Route: 048
     Dates: start: 20140311, end: 20140324
  17. REVOLADE [Concomitant]
     Active Substance: ELTROMBOPAG
     Dosage: 25 MG, UNK
     Route: 048
     Dates: start: 20140617
  18. RENIVACE [Concomitant]
     Active Substance: ENALAPRIL
     Indication: HYPERTENSION
     Dosage: UNK
     Route: 048
  19. PURSENNID [Concomitant]
     Active Substance: SENNOSIDES A AND B
     Indication: CONSTIPATION
     Dosage: UNK
     Route: 048
  20. REVOLADE [Concomitant]
     Active Substance: ELTROMBOPAG
     Dosage: 37.5 MG, UNK
     Route: 048
     Dates: start: 20140527, end: 20140616
  21. ROMIPLOSTIM [Suspect]
     Active Substance: ROMIPLOSTIM
     Dosage: 3 MUG/KG, UNK
     Route: 058
     Dates: start: 20140321, end: 20140321
  22. PREDNISOLONE. [Concomitant]
     Active Substance: PREDNISOLONE
     Dosage: 10 MG, UNK
     Route: 048
     Dates: start: 20140304, end: 20140324
  23. NEXIUM [Concomitant]
     Active Substance: ESOMEPRAZOLE MAGNESIUM
     Indication: GASTROOESOPHAGEAL REFLUX DISEASE
     Dosage: UNK
     Route: 048
  24. RHYTHMY [Concomitant]
     Active Substance: RILMAZAFONE HYDROCHLORIDE
     Indication: INSOMNIA
     Dosage: UNK
     Route: 048
  25. ZYLORIC [Concomitant]
     Active Substance: ALLOPURINOL
     Indication: HYPERURICAEMIA
     Dosage: UNK
     Route: 048
  26. GRAN [Concomitant]
     Active Substance: FILGRASTIM
     Indication: AUTOIMMUNE NEUTROPENIA
     Dosage: UNK
     Route: 065
  27. ROMIPLOSTIM [Suspect]
     Active Substance: ROMIPLOSTIM
     Dosage: 4 MUG/KG, QWK
     Route: 058
     Dates: start: 20140328, end: 20140404
  28. PREDNISOLONE. [Concomitant]
     Active Substance: PREDNISOLONE
     Dosage: 10 MG, UNK
     Route: 048
     Dates: start: 20140222, end: 20140225
  29. PREDNISOLONE. [Concomitant]
     Active Substance: PREDNISOLONE
     Dosage: 15 MG, UNK
     Route: 048
     Dates: start: 20140228, end: 20140303
  30. REVOLADE [Concomitant]
     Active Substance: ELTROMBOPAG
     Dosage: 50 MG, UNK
     Route: 048
     Dates: start: 20140325, end: 20140526

REACTIONS (2)
  - Leukopenia [Recovered/Resolved]
  - Neutropenia [Recovered/Resolved]

NARRATIVE: CASE EVENT DATE: 20140317
